FAERS Safety Report 6959504-X (Version None)
Quarter: 2010Q3

REPORT INFORMATION
  Report Type: 
  Country: None (occurrence: None)
  Receive Date: 20100827
  Receipt Date: 20100817
  Transmission Date: 20110219
  Serious: Yes (Hospitalization, Disabling, Other)
  Sender: FDA-Public Use
  Company Number: 2005-136056-NL

PATIENT
  Age: 36 Year
  Sex: Female
  Weight: 72.6 kg

DRUGS (8)
  1. NUVARING [Suspect]
     Indication: ENDOMETRIOSIS
     Dosage: ; VAG
     Route: 067
     Dates: start: 20040901, end: 20051118
  2. NUVARING [Suspect]
  3. ADVAIR DISKUS 100/50 [Concomitant]
  4. ALBUTEROL [Concomitant]
  5. PROMETHAZINE [Concomitant]
  6. HYDROCODONE BITARTRATE AND ACETAMINOPHEN [Concomitant]
  7. ZYRTEC [Concomitant]
  8. LORTAB [Concomitant]

REACTIONS (25)
  - ARTHROPATHY [None]
  - ASTHMA [None]
  - BREAST ENLARGEMENT [None]
  - DEEP VEIN THROMBOSIS [None]
  - DYSGEUSIA [None]
  - EMOTIONAL DISORDER [None]
  - EYELID CYST [None]
  - GAIT DISTURBANCE [None]
  - GENE MUTATION [None]
  - HAEMOPTYSIS [None]
  - LYMPHADENOPATHY [None]
  - MAY-THURNER SYNDROME [None]
  - MUSCLE SPASMS [None]
  - NEPHROLITHIASIS [None]
  - OVARIAN CYST [None]
  - PNEUMONIA [None]
  - POST THROMBOTIC SYNDROME [None]
  - PULMONARY EMBOLISM [None]
  - RENAL ATROPHY [None]
  - SCIATICA [None]
  - SUPRAVENTRICULAR TACHYCARDIA [None]
  - THROMBOPHLEBITIS [None]
  - UPPER RESPIRATORY TRACT INFECTION [None]
  - URINARY SEDIMENT PRESENT [None]
  - UTERINE POLYP [None]
